FAERS Safety Report 6174166-X (Version None)
Quarter: 2009Q2

REPORT INFORMATION
  Report Type: 
  Country: None (occurrence: None)
  Receive Date: 20090430
  Receipt Date: 20080423
  Transmission Date: 20091009
  Serious: No
  Sender: FDA-Public Use
  Company Number: US-ASTRAZENECA-2008UW07408

PATIENT
  Sex: Female

DRUGS (5)
  1. NEXIUM [Suspect]
     Indication: HIATUS HERNIA
     Route: 048
     Dates: start: 20070101
  2. VASOTEC [Concomitant]
  3. TENORMIN [Concomitant]
  4. PRAVACHOL [Concomitant]
  5. SYNTHROID [Concomitant]

REACTIONS (3)
  - ABDOMINAL DISTENSION [None]
  - CARDIAC FLUTTER [None]
  - FLATULENCE [None]
